FAERS Safety Report 11109145 (Version 1)
Quarter: 2015Q2

REPORT INFORMATION
  Report Type: Spontaneous
  Country: GB (occurrence: GB)
  Receive Date: 20150513
  Receipt Date: 20150513
  Transmission Date: 20150821
  Serious: Yes (Hospitalization)
  Sender: FDA-Public Use
  Company Number: GB-ROCHE-1576705

PATIENT
  Age: 58 Year
  Sex: Female

DRUGS (1)
  1. LUCENTIS [Suspect]
     Active Substance: RANIBIZUMAB
     Indication: NEOVASCULAR AGE-RELATED MACULAR DEGENERATION
     Dosage: 0.5MG IN 0.05ML,
     Route: 047
     Dates: start: 20141218

REACTIONS (4)
  - Endophthalmitis [Recovered/Resolved]
  - Blindness [Unknown]
  - Staphylococcal infection [Unknown]
  - Eye pain [Unknown]

NARRATIVE: CASE EVENT DATE: 20141222
